FAERS Safety Report 9250665 (Version 1)
Quarter: 2013Q1

REPORT INFORMATION
  Report Type: Spontaneous
  Country: US (occurrence: None)
  Receive Date: 20130305
  Receipt Date: 20130305
  Transmission Date: 20140127
  Serious: Yes (Other)
  Sender: FDA-Public Use
  Company Number: 163-21880-12042703

PATIENT
  Age: 68 Year
  Sex: Female
  Weight: 86.18 kg

DRUGS (12)
  1. REVLIMID [Suspect]
     Indication: PLASMA CELL MYELOMA
     Route: 048
     Dates: start: 201106, end: 201204
  2. ACTOS (PIOGLITAZONE) [Concomitant]
  3. METFORMIN (METFORMIN) [Concomitant]
  4. OMEPRAZOLE (OMEPRAZOLE) [Concomitant]
  5. GABAPENTIN (GABAPENTIN) [Concomitant]
  6. FUROSEMIDE (FUROSEMIDE) [Concomitant]
  7. METHAZOLAMIDE (METHAZOLAMIDE) [Concomitant]
  8. ASPIRIN (ACETYLSALICYLIC ACID) [Concomitant]
  9. VITAMIN C [Concomitant]
  10. VITAMIN D (ERGOCALCIFEROL) [Concomitant]
  11. VITAMIN K (PHYTOMENADIONE) [Concomitant]
  12. MAGNESIUM (MAGNESIUM) [Concomitant]

REACTIONS (2)
  - Red blood cell count decreased [None]
  - Fluid retention [None]
